FAERS Safety Report 9065122 (Version 1)
Quarter: 2013Q1

REPORT INFORMATION
  Report Type: Spontaneous
  Country: IN (occurrence: IN)
  Receive Date: 20130128
  Receipt Date: 20130128
  Transmission Date: 20140127
  Serious: Yes (Death, Hospitalization)
  Sender: FDA-Public Use
  Company Number: PHHY2013IN007330

PATIENT
  Age: 65 Year
  Sex: Female

DRUGS (2)
  1. SEBIVO [Suspect]
     Indication: CHRONIC HEPATITIS B
     Dosage: 600 MG, QD
     Route: 048
     Dates: start: 20120919
  2. CHEMOTHERAPEUTICS [Concomitant]
     Indication: THROAT CANCER
     Dosage: UNK UKN, UNK

REACTIONS (2)
  - Throat cancer [Fatal]
  - Dyspnoea [Fatal]
